FAERS Safety Report 24326728 (Version 1)
Quarter: 2024Q3

REPORT INFORMATION
  Report Type: Spontaneous
  Country: CN (occurrence: CN)
  Receive Date: 20240917
  Receipt Date: 20240917
  Transmission Date: 20241016
  Serious: Yes (Other)
  Sender: ACCORD
  Company Number: CN-MLMSERVICE-20240829-PI171707-00165-1

PATIENT
  Age: 56 Year
  Sex: Female

DRUGS (18)
  1. GEMCITABINE [Suspect]
     Active Substance: GEMCITABINE
     Indication: Metastases to liver
     Dosage: 2 CYCLES
     Dates: start: 20190914, end: 20191118
  2. PACLITAXEL [Suspect]
     Active Substance: PACLITAXEL
     Indication: Metastases to retroperitoneum
     Dosage: 2 CYCLES
     Dates: start: 20190914, end: 20191118
  3. PEMBROLIZUMAB [Suspect]
     Active Substance: PEMBROLIZUMAB
     Indication: Metastases to abdominal cavity
     Dosage: 2 CYCLES
     Dates: start: 20190914, end: 20191118
  4. PACLITAXEL [Suspect]
     Active Substance: PACLITAXEL
     Indication: Gallbladder cancer stage IV
     Dosage: 2 CYCLES
     Dates: start: 20190914, end: 20191118
  5. GEMCITABINE [Suspect]
     Active Substance: GEMCITABINE
     Indication: Metastases to abdominal cavity
     Dosage: 2 CYCLES
     Dates: start: 20190914, end: 20191118
  6. GEMCITABINE [Suspect]
     Active Substance: GEMCITABINE
     Indication: Metastases to spleen
     Dosage: 2 CYCLES
     Dates: start: 20190914, end: 20191118
  7. GEMCITABINE [Suspect]
     Active Substance: GEMCITABINE
     Indication: Metastases to retroperitoneum
     Dosage: 2 CYCLES
     Dates: start: 20190914, end: 20191118
  8. GEMCITABINE [Suspect]
     Active Substance: GEMCITABINE
     Indication: Gallbladder cancer stage IV
     Dosage: 2 CYCLES
     Dates: start: 20190914, end: 20191118
  9. GEMCITABINE [Suspect]
     Active Substance: GEMCITABINE
     Indication: Metastases to lymph nodes
     Dosage: 2 CYCLES
     Dates: start: 20190914, end: 20191118
  10. PACLITAXEL [Suspect]
     Active Substance: PACLITAXEL
     Indication: Metastases to liver
     Dosage: 2 CYCLES
     Dates: start: 20190914, end: 20191118
  11. PACLITAXEL [Suspect]
     Active Substance: PACLITAXEL
     Indication: Metastases to lymph nodes
     Dosage: 2 CYCLES
     Dates: start: 20190914, end: 20191118
  12. PACLITAXEL [Suspect]
     Active Substance: PACLITAXEL
     Indication: Metastases to abdominal cavity
     Dosage: 2 CYCLES
     Dates: start: 20190914, end: 20191118
  13. PACLITAXEL [Suspect]
     Active Substance: PACLITAXEL
     Indication: Metastases to spleen
     Dosage: 2 CYCLES
     Dates: start: 20190914, end: 20191118
  14. PEMBROLIZUMAB [Suspect]
     Active Substance: PEMBROLIZUMAB
     Indication: Gallbladder cancer stage IV
     Dosage: 2 CYCLES
     Dates: start: 20190914, end: 20191118
  15. PEMBROLIZUMAB [Suspect]
     Active Substance: PEMBROLIZUMAB
     Indication: Metastases to retroperitoneum
     Dosage: 2 CYCLES
     Dates: start: 20190914, end: 20191118
  16. PEMBROLIZUMAB [Suspect]
     Active Substance: PEMBROLIZUMAB
     Indication: Metastases to spleen
     Dosage: 2 CYCLES
     Dates: start: 20190914, end: 20191118
  17. PEMBROLIZUMAB [Suspect]
     Active Substance: PEMBROLIZUMAB
     Indication: Metastases to lymph nodes
     Dosage: 2 CYCLES
     Dates: start: 20190914, end: 20191118
  18. PEMBROLIZUMAB [Suspect]
     Active Substance: PEMBROLIZUMAB
     Indication: Metastases to liver
     Dosage: 2 CYCLES
     Dates: start: 20190914, end: 20191118

REACTIONS (4)
  - Agranulocytosis [Unknown]
  - Pyrexia [Unknown]
  - Myelosuppression [Unknown]
  - Deep vein thrombosis [Unknown]

NARRATIVE: CASE EVENT DATE: 20190101
